FAERS Safety Report 18366544 (Version 1)
Quarter: 2020Q4

REPORT INFORMATION
  Report Type: Spontaneous
  Country: CA (occurrence: CA)
  Receive Date: 20201009
  Receipt Date: 20201009
  Transmission Date: 20210114
  Serious: Yes (Other)
  Sender: FDA-Public Use
  Company Number: CA-PFIZER INC-2020283859

PATIENT
  Age: 71 Year
  Sex: Male

DRUGS (10)
  1. SACUBITRIL/VALSARTAN [Concomitant]
     Active Substance: SACUBITRIL\VALSARTAN
     Dosage: 26+24 MG, 2X/DAY TAKE 1 TABLET TWICE DAILY
     Route: 048
  2. XELJANZ XR [Suspect]
     Active Substance: TOFACITINIB CITRATE
     Indication: RHEUMATOID ARTHRITIS
     Dosage: 11 MG, 1X/DAY
     Route: 048
     Dates: start: 201912
  3. SPIRONOLACTONE. [Concomitant]
     Active Substance: SPIRONOLACTONE
     Dosage: 25 MG, DAILY TAKE 1/2 (HALF) TABLET ONCE DAILY IN THE MORNING
     Route: 048
  4. HYDROXYCHLOROQUINE [Concomitant]
     Active Substance: HYDROXYCHLOROQUINE
     Dosage: 200 MG ALTERNATE DAYS TAKE ONE OR TWO TABLETS EVERY ALTERNATE DAYS
     Route: 048
  5. PREDNISONE. [Concomitant]
     Active Substance: PREDNISONE
     Dosage: 5 MG (TAKE 1 TABLET AS DIRECTED BY DOCTOR)
     Route: 048
  6. METHOTREXATE. [Concomitant]
     Active Substance: METHOTREXATE
     Dosage: 10 MG (TAKE 2 + 1/2 TABLETS ONCE A WEEK)
  7. METHOTREXATE. [Concomitant]
     Active Substance: METHOTREXATE
     Indication: RHEUMATOID ARTHRITIS
     Dosage: 20 MG, WEEKLY
     Dates: start: 201010
  8. ROSUVASTATIN. [Concomitant]
     Active Substance: ROSUVASTATIN
     Dosage: 10 MG, DAILY,TAKE 1 TABLET ONCE DAILY AT BEDTIME
     Route: 048
  9. LEUCOVORIN CALCIUM. [Concomitant]
     Active Substance: LEUCOVORIN CALCIUM
     Dosage: 5 MG TAKE 1 TABLET ONCE A WEEK
  10. CARVEDILOL. [Concomitant]
     Active Substance: CARVEDILOL
     Dosage: 12.5 MG, 2X/DAY (TAKE 1 TABLET TWICE DAILY WITH FOOD)
     Route: 048

REACTIONS (8)
  - Polyarthritis [Unknown]
  - Chronic kidney disease [Unknown]
  - Pain [Unknown]
  - Arthralgia [Unknown]
  - Joint lock [Unknown]
  - Hypokinesia [Unknown]
  - Therapeutic product effect incomplete [Unknown]
  - Trigger finger [Unknown]
